FAERS Safety Report 5660907-4 (Version None)
Quarter: 2008Q1

REPORT INFORMATION
  Report Type: 
  Country: None (occurrence: None)
  Receive Date: 20080311
  Receipt Date: 20080226
  Transmission Date: 20080703
  Serious: Yes (Other)
  Sender: FDA-Public Use
  Company Number: FR-JNJFOC-20080301794

PATIENT
  Age: 30 Year
  Sex: Male

DRUGS (3)
  1. TOPALGIC [Suspect]
     Indication: MUSCULOSKELETAL PAIN
     Route: 048
  2. TOPALGIC [Suspect]
     Route: 048
  3. EFFERALGAN [Concomitant]
     Route: 048

REACTIONS (3)
  - ROAD TRAFFIC ACCIDENT [None]
  - SOMNOLENCE [None]
  - WEIGHT DECREASED [None]
